FAERS Safety Report 8633060 (Version 3)
Quarter: 2014Q1

REPORT INFORMATION
  Report Type: Spontaneous
  Country: US (occurrence: US)
  Receive Date: 20120625
  Receipt Date: 20140227
  Transmission Date: 20141002
  Serious: Yes (Death, Congenital Anomaly, Other)
  Sender: FDA-Public Use
  Company Number: US-PFIZER INC-2012148570

PATIENT
  Sex: Female

DRUGS (7)
  1. ZOLOFT [Suspect]
     Indication: DEPRESSION
     Dosage: 150 MG, DAILY
     Route: 064
     Dates: start: 2005, end: 201007
  2. PRO-AIR [Concomitant]
     Indication: ASTHMA
     Dosage: TWO PUFFS EVERY 4-6 HOURS AS NEEDED
     Route: 064
     Dates: start: 200505, end: 201005
  3. ALBUTEROL [Concomitant]
     Indication: ASTHMA
     Dosage: 1 DF (VIAL), EVERY 4 HRS, AS NEEDED
     Route: 064
     Dates: start: 200505, end: 201005
  4. ACCOLATE [Concomitant]
     Indication: ASTHMA
     Dosage: 20 MG, 2X/DAY, AS NEEDED
     Route: 064
     Dates: start: 200505, end: 201005
  5. OB NATAL ONE [Concomitant]
     Indication: PREGNANCY
     Dosage: 1X/DAY
     Route: 064
     Dates: start: 200909, end: 201007
  6. METOCLOPRAMIDE [Concomitant]
     Dosage: 10 MG, EVERY 6-8 HOURS AS NEEDED
     Route: 064
     Dates: start: 200911
  7. AMOXICILLIN [Concomitant]
     Indication: INFECTION
     Dosage: 500 MG, 2X/DAY (EVERY 12 HOURS)
     Route: 064
     Dates: start: 200912

REACTIONS (13)
  - Maternal exposure timing unspecified [Fatal]
  - Congenital anomaly [Fatal]
  - Heart disease congenital [Fatal]
  - Hypoplastic left heart syndrome [Fatal]
  - Mitral valve atresia [Fatal]
  - Aortic valve atresia [Fatal]
  - Heart disease congenital [Fatal]
  - Heart disease congenital [Fatal]
  - Ventricular septal defect [Fatal]
  - Transposition of the great vessels [Fatal]
  - Aorta hypoplasia [Fatal]
  - Patent ductus arteriosus [Fatal]
  - Atrial septal defect [Fatal]
